FAERS Safety Report 6059993-1 (Version None)
Quarter: 2009Q1

REPORT INFORMATION
  Report Type: 
  Country: None (occurrence: None)
  Receive Date: 20090130
  Receipt Date: 20090119
  Transmission Date: 20090719
  Serious: Yes (Other)
  Sender: FDA-Public Use
  Company Number: NL-WYE-G02961409

PATIENT
  Age: 30 Year
  Sex: Male
  Weight: 70 kg

DRUGS (2)
  1. EFFEXOR XR [Suspect]
     Indication: ATTENTION DEFICIT/HYPERACTIVITY DISORDER
     Route: 048
     Dates: start: 20081101, end: 20081101
  2. TELFAST [Interacting]
     Indication: ALPHA-1 ANTI-TRYPSIN DEFICIENCY
     Route: 048

REACTIONS (6)
  - AGITATION [None]
  - ANXIETY [None]
  - DRUG INTERACTION [None]
  - EXTRAPYRAMIDAL DISORDER [None]
  - SEROTONIN SYNDROME [None]
  - TRISMUS [None]
